FAERS Safety Report 4320246-0 (Version None)
Quarter: 2004Q1

REPORT INFORMATION
  Report Type: 
  Country: None (occurrence: None)
  Receive Date: 20040317
  Receipt Date: 20040309
  Transmission Date: 20041129
  Serious: Yes (Death, Other)
  Sender: FDA-Public Use
  Company Number: 200410453GDS

PATIENT
  Age: 84 Year
  Sex: Female

DRUGS (5)
  1. AVELOX [Suspect]
     Indication: BRONCHITIS ACUTE
     Dosage: 400 MG, TOTAL DAILY, ORAL
     Route: 048
     Dates: start: 20040121, end: 20040126
  2. ADALAT OROS [Concomitant]
  3. CORVATON [Concomitant]
  4. ZYPREXA [Concomitant]
  5. AUGMENTIN [Concomitant]

REACTIONS (5)
  - CARDIAC DISORDER [None]
  - CONFUSIONAL STATE [None]
  - DRUG INTERACTION [None]
  - EMBOLISM [None]
  - SUDDEN DEATH [None]
